FAERS Safety Report 8963379 (Version 4)
Quarter: 2013Q2

REPORT INFORMATION
  Report Type: Spontaneous
  Country: US (occurrence: US)
  Receive Date: 20121213
  Receipt Date: 20130401
  Transmission Date: 20140414
  Serious: Yes (Other)
  Sender: FDA-Public Use
  Company Number: US-PFIZER INC-2012315089

PATIENT
  Age: 54 Year
  Sex: Female

DRUGS (8)
  1. ZOLOFT [Suspect]
     Dosage: 100 MG, 1X/DAY
  2. CYCLOBENZAPRINE [Concomitant]
     Dosage: 10 MG, 1X/DAY
  3. HYDROCHLOROT [Concomitant]
     Dosage: 12.5 MG, 1X/DAY
  4. NAPROXEN [Concomitant]
     Dosage: 500 MG, 2X/DAY
  5. DOXYCYCL HYC [Concomitant]
     Dosage: 100 MG, UNK
  6. LAMOTRIGINE [Concomitant]
     Dosage: 100 MG, 1X/DAY
  7. LACTULOSE [Concomitant]
     Dosage: 10MG/15
  8. TRAZODONE [Concomitant]
     Dosage: 150 MG, 1X/DAY(AT BEDTIME)

REACTIONS (3)
  - Hepatic cirrhosis [Unknown]
  - Bipolar disorder [Unknown]
  - Intervertebral disc degeneration [Unknown]
